FAERS Safety Report 7648415-2 (Version None)
Quarter: 2011Q3

REPORT INFORMATION
  Report Type: 
  Country: None (occurrence: None)
  Receive Date: 20110801
  Receipt Date: 20110726
  Transmission Date: 20111222
  Serious: Yes (Hospitalization)
  Sender: FDA-Public Use
  Company Number: FR-ABBOTT-11P-056-0841787-00

PATIENT
  Age: 67 Year
  Sex: Female

DRUGS (3)
  1. ACETAMINOPHEN [Suspect]
     Indication: MIGRAINE
     Dates: end: 20110428
  2. FURADANTIN [Suspect]
     Indication: CYSTITIS
     Route: 048
     Dates: start: 20100701, end: 20110428
  3. DEPAKENE [Suspect]
     Indication: MIGRAINE
     Dosage: 500MG DAILY, EXTENED RELEASE
     Route: 048
     Dates: start: 20100701, end: 20110428

REACTIONS (2)
  - HEPATIC ENZYME INCREASED [None]
  - HEPATOCELLULAR INJURY [None]
